FAERS Safety Report 6142795-5 (Version None)
Quarter: 2009Q1

REPORT INFORMATION
  Report Type: 
  Country: None (occurrence: None)
  Receive Date: 20090330
  Receipt Date: 20080409
  Transmission Date: 20090719
  Serious: Yes (Other)
  Sender: FDA-Public Use
  Company Number: OSCN-PR-0804S-0201

PATIENT
  Sex: Male

DRUGS (1)
  1. OMNISCAN [Suspect]
     Indication: DRUG USE FOR UNKNOWN INDICATION
     Dosage: 15 ML, SINGLE DOSE, I.V.
     Route: 042
     Dates: start: 20080401, end: 20080401

REACTIONS (1)
  - ANAPHYLACTOID REACTION [None]
